FAERS Safety Report 20327646 (Version 5)
Quarter: 2022Q2

REPORT INFORMATION
  Report Type: Report from Study
  Country: FR (occurrence: FR)
  Receive Date: 20220112
  Receipt Date: 20220608
  Transmission Date: 20220721
  Serious: Yes (Hospitalization, Other)
  Sender: FDA-Public Use
  Company Number: FR-BRISTOL-MYERS SQUIBB COMPANY-BMS-2021-144807

PATIENT
  Age: 60 Year
  Sex: Male
  Weight: 70.00 kg

DRUGS (1)
  1. REGORAFENIB [Suspect]
     Active Substance: REGORAFENIB
     Indication: Oesophageal squamous cell carcinoma
     Dosage: REGIMEN 1 (90 MG: 07-OCT-2021 TO 27-OCT-2021)?REGIMEN 2 (120 MG: 04-NOV-2021 TO 22-NOV-2021)?REGIMEN
     Route: 048
     Dates: start: 20211007

REACTIONS (2)
  - Myocardial infarction [Recovered/Resolved]
  - Atrial fibrillation [Not Recovered/Not Resolved]

NARRATIVE: CASE EVENT DATE: 20211122
